FAERS Safety Report 10087937 (Version 1)
Quarter: 2014Q2

REPORT INFORMATION
  Report Type: Spontaneous
  Country: US (occurrence: US)
  Receive Date: 20140419
  Receipt Date: 20140419
  Transmission Date: 20141212
  Serious: No
  Sender: FDA-Public Use
  Company Number: US-009507513-1404USA010315

PATIENT
  Age: 18 Year
  Sex: Female

DRUGS (1)
  1. NUVARING [Suspect]
     Dosage: 3 WEEKS IN 1 WEEK OUT
     Route: 067
     Dates: start: 201204

REACTIONS (6)
  - Vulvovaginal swelling [Unknown]
  - Stress [Unknown]
  - Breast pain [Unknown]
  - Anxiety [Unknown]
  - Fatigue [Unknown]
  - Back pain [Unknown]
